FAERS Safety Report 12854892 (Version 1)
Quarter: 2016Q4

REPORT INFORMATION
  Report Type: Spontaneous
  Country: US (occurrence: US)
  Receive Date: 20161017
  Receipt Date: 20161017
  Transmission Date: 20170207
  Serious: No
  Sender: FDA-Public Use
  Company Number: US-BAYER-2016-199126

PATIENT
  Age: 34 Year
  Sex: Female

DRUGS (1)
  1. MIRENA [Suspect]
     Active Substance: LEVONORGESTREL
     Indication: CONTRACEPTION
     Dosage: 20 MCG/24HR, CONT
     Route: 015
     Dates: start: 20140724, end: 2016

REACTIONS (8)
  - Menorrhagia [None]
  - Urinary tract infection [None]
  - Cervical discharge [None]
  - Device malfunction [None]
  - Fungal infection [None]
  - Blood urine present [None]
  - Device expulsion [None]
  - Pelvic pain [None]

NARRATIVE: CASE EVENT DATE: 2016
